FAERS Safety Report 9541779 (Version 1)
Quarter: 2013Q3

REPORT INFORMATION
  Report Type: Spontaneous
  Country: US (occurrence: None)
  Receive Date: 20130919
  Receipt Date: 20130919
  Transmission Date: 20140515
  Serious: Yes (Hospitalization)
  Sender: FDA-Public Use
  Company Number: None

PATIENT
  Age: 60 Year
  Sex: Male
  Weight: 134.8 kg

DRUGS (2)
  1. LISINOPRIL [Suspect]
     Indication: HYPERTENSION
     Dosage: 10 MG EVERY DAY PO
     Route: 048
     Dates: start: 20030620, end: 20130622
  2. LISINOPRIL [Suspect]
     Indication: HYPERLIPIDAEMIA
     Dosage: 10 MG EVERY DAY PO
     Route: 048
     Dates: start: 20030620, end: 20130622

REACTIONS (7)
  - Confusional state [None]
  - Pruritus [None]
  - Arthropod bite [None]
  - Pharyngitis [None]
  - Angioedema [None]
  - Dysphagia [None]
  - Anaphylactic reaction [None]
